FAERS Safety Report 7223497-0 (Version None)
Quarter: 2011Q1

REPORT INFORMATION
  Report Type: 
  Country: None (occurrence: None)
  Receive Date: 20110112
  Receipt Date: 20100802
  Transmission Date: 20110831
  Serious: No
  Sender: FDA-Public Use
  Company Number: US-ALLERGAN-1010007US

PATIENT
  Age: 44 Year
  Sex: Female

DRUGS (2)
  1. STIMULATION [Concomitant]
     Indication: DRY EYE
     Dosage: 1 GTT, PRN
     Route: 047
  2. RESTASIS [Suspect]
     Indication: DRY EYE
     Dosage: 1 GTT, QD
     Route: 047
     Dates: end: 20100801

REACTIONS (2)
  - EYE IRRITATION [None]
  - LACRIMATION INCREASED [None]
